FAERS Safety Report 15703251 (Version 1)
Quarter: 2018Q4

REPORT INFORMATION
  Report Type: Spontaneous
  Country: US (occurrence: US)
  Receive Date: 20181209
  Receipt Date: 20181209
  Transmission Date: 20190205
  Serious: No
  Sender: FDA-Public Use
  Company Number: None

PATIENT
  Age: 32 Year
  Sex: Male
  Weight: 76.5 kg

DRUGS (1)
  1. AIMOVIG [Suspect]
     Active Substance: ERENUMAB-AOOE
     Indication: MIGRAINE
     Dosage: ?          QUANTITY:1 INJECTION(S);OTHER FREQUENCY:TWO TIMES PER MONT;?
     Route: 058
     Dates: start: 20181001, end: 20181119

REACTIONS (8)
  - Migraine with aura [None]
  - Weight decreased [None]
  - Hyperhidrosis [None]
  - Abnormal dreams [None]
  - Fatigue [None]
  - Poor quality sleep [None]
  - Irritability [None]
  - Constipation [None]

NARRATIVE: CASE EVENT DATE: 20181015
